FAERS Safety Report 4480924-X (Version None)
Quarter: 2004Q4

REPORT INFORMATION
  Report Type: 
  Country: None (occurrence: None)
  Receive Date: 20041020
  Receipt Date: 20041020
  Transmission Date: 20050328
  Serious: Yes (Life-Threatening)
  Sender: FDA-Public Use
  Company Number: None

PATIENT
  Age: 75 Year
  Sex: Female
  Weight: 92.8 kg

DRUGS (6)
  1. DILAUDID [Suspect]
     Indication: BACK PAIN
     Dosage: 1 MG IV/IM Q 4H PRN
     Route: 042
     Dates: start: 20040814, end: 20040818
  2. LORAZEPAM [Suspect]
     Indication: ANXIETY
     Dosage: 1 MG IV Q 6 PRN
     Route: 042
     Dates: start: 20040814, end: 20040818
  3. FENTANYL [Concomitant]
  4. CEFTRIAXONE SODIUM [Concomitant]
  5. CLINDAMYCIN HCL [Concomitant]
  6. ENOXAPARIN SODIUM [Concomitant]

REACTIONS (2)
  - DEPRESSED LEVEL OF CONSCIOUSNESS [None]
  - RESPIRATORY FAILURE [None]
